FAERS Safety Report 5872852-X (Version None)
Quarter: 2008Q3

REPORT INFORMATION
  Report Type: 
  Country: None (occurrence: None)
  Receive Date: 20080903
  Receipt Date: 20080822
  Transmission Date: 20090109
  Serious: Yes (Hospitalization, Other)
  Sender: FDA-Public Use
  Company Number: 2008-03098

PATIENT
  Age: 73 Year
  Sex: Male
  Weight: 83 kg

DRUGS (7)
  1. VELCADE [Suspect]
     Indication: MULTIPLE MYELOMA
     Dosage: 1.9 MG, UNK, IV BOLUS
     Route: 040
     Dates: start: 20030101
  2. THALIDOMIDE [Suspect]
     Indication: MULTIPLE MYELOMA
     Dosage: UNK, UNK, UNK
     Dates: start: 20030101
  3. VALTREX (VALACICLOVIR HYDROHLORIDE) [Concomitant]
  4. LYRICA [Concomitant]
  5. LIPITOR [Concomitant]
  6. AMIODARONE HCL [Concomitant]
  7. LASIX [Concomitant]

REACTIONS (3)
  - ATRIAL FIBRILLATION [None]
  - MYELODYSPLASTIC SYNDROME [None]
  - NEUTROPENIC SEPSIS [None]
